FAERS Safety Report 25609024 (Version 3)
Quarter: 2025Q3

REPORT INFORMATION
  Report Type: Spontaneous
  Country: US (occurrence: US)
  Receive Date: 20250726
  Receipt Date: 20250929
  Transmission Date: 20251021
  Serious: No
  Sender: IPSEN BIOPHARMACEUTICALS, INC.
  Company Number: US-IPSEN Group, Research and Development-2025-18092

PATIENT
  Sex: Female

DRUGS (1)
  1. SOHONOS [Suspect]
     Active Substance: PALOVAROTENE
     Indication: Fibrodysplasia ossificans progressiva
     Dosage: 5MG ONE TIME A DAY
     Route: 048
     Dates: start: 202310

REACTIONS (1)
  - Condition aggravated [Unknown]
